FAERS Safety Report 13175464 (Version 1)
Quarter: 2017Q1

REPORT INFORMATION
  Report Type: Spontaneous
  Country: US (occurrence: US)
  Receive Date: 20170131
  Receipt Date: 20170131
  Transmission Date: 20170428
  Serious: Yes (Other)
  Sender: FDA-Public Use
  Company Number: None

PATIENT
  Age: 38 Year
  Sex: Female
  Weight: 51.3 kg

DRUGS (2)
  1. HUMAN CHORIONIC GONADOTROPIN [Suspect]
     Active Substance: GONADOTROPHIN, CHORIONIC
     Indication: INFERTILITY
     Route: 030
  2. FOLATE [Concomitant]
     Active Substance: FOLATE SODIUM

REACTIONS (7)
  - Photopsia [None]
  - Seizure [None]
  - Auditory disorder [None]
  - Diplopia [None]
  - Feeling hot [None]
  - Blindness transient [None]
  - Feeling abnormal [None]

NARRATIVE: CASE EVENT DATE: 20150701
